FAERS Safety Report 8601671-6 (Version None)
Quarter: 2012Q3

REPORT INFORMATION
  Report Type: 
  Country: None (occurrence: None)
  Receive Date: 20120806
  Receipt Date: 20120806
  Transmission Date: 20120928
  Serious: Yes (Other)
  Sender: FDA-Public Use
  Company Number: None

PATIENT
  Sex: Female
  Weight: 87.0906 kg

DRUGS (1)
  1. FLUPHENAZINE [Suspect]
     Indication: SCHIZOPHRENIA
     Dosage: 5 MGS. 1X PER DAY BY MOUTH
     Route: 048
     Dates: start: 19840101, end: 20120101

REACTIONS (15)
  - HAEMORRHAGE [None]
  - HYPERHIDROSIS [None]
  - RASH [None]
  - ARTHRALGIA [None]
  - CONTUSION [None]
  - POLLAKIURIA [None]
  - ABDOMINAL PAIN UPPER [None]
  - NEOPLASM [None]
  - MASKED FACIES [None]
  - TREMOR [None]
  - RESTLESSNESS [None]
  - PRURITUS [None]
  - ABNORMAL DREAMS [None]
  - MYALGIA [None]
  - EYE DISORDER [None]
